FAERS Safety Report 19840892 (Version 1)
Quarter: 2021Q3

REPORT INFORMATION
  Report Type: Spontaneous
  Country: MX (occurrence: MX)
  Receive Date: 20210916
  Receipt Date: 20210916
  Transmission Date: 20211014
  Serious: No
  Sender: FDA-Public Use
  Company Number: MX-TOLMAR, INC.-21MX029667

PATIENT
  Age: 8 Year
  Sex: Female

DRUGS (1)
  1. ELIGARD [Suspect]
     Active Substance: LEUPROLIDE ACETATE
     Indication: PRODUCT USED FOR UNKNOWN INDICATION
     Dosage: 22.5 MILLIGRAM

REACTIONS (4)
  - Product preparation error [Unknown]
  - Syringe issue [Unknown]
  - Off label use [Unknown]
  - Product administration error [Unknown]
